FAERS Safety Report 6408969-0 (Version None)
Quarter: 2009Q4

REPORT INFORMATION
  Report Type: 
  Country: None (occurrence: None)
  Receive Date: 20091021
  Receipt Date: 20091012
  Transmission Date: 20100525
  Serious: Yes (Other)
  Sender: FDA-Public Use
  Company Number: US-ASTRAZENECA-2009SE19662

PATIENT
  Age: 59 Year
  Sex: Female
  Weight: 109 kg

DRUGS (14)
  1. METOPROLOL [Suspect]
     Indication: HEART RATE INCREASED
     Dates: start: 20080101, end: 20080101
  2. LIPITOR [Suspect]
     Indication: BLOOD CHOLESTEROL INCREASED
     Route: 048
  3. CELEBREX [Suspect]
     Indication: ARTHRITIS
     Route: 048
     Dates: end: 20080101
  4. DETROL LA [Suspect]
     Indication: HYPERTONIC BLADDER
     Route: 048
  5. ASPIRIN [Concomitant]
  6. TRICOR [Concomitant]
  7. PREVACID [Concomitant]
  8. NOVOLOG [Concomitant]
     Dosage: 50 UNIT AFTER EATING
  9. METFORMIN [Concomitant]
  10. SPIRONOLACTONE [Concomitant]
  11. GLIMEPIRIDE [Concomitant]
  12. FOLIC ACID [Concomitant]
  13. EXCEDRIN (MIGRAINE) [Concomitant]
  14. XANAX [Concomitant]

REACTIONS (7)
  - BLOOD GLUCOSE INCREASED [None]
  - BLOOD PRESSURE INCREASED [None]
  - DRUG INEFFECTIVE [None]
  - DYSPNOEA [None]
  - EXTRASYSTOLES [None]
  - GLYCOSYLATED HAEMOGLOBIN [None]
  - HEART RATE INCREASED [None]
